FAERS Safety Report 21381078 (Version 1)
Quarter: 2022Q3

REPORT INFORMATION
  Report Type: Spontaneous
  Country: FR (occurrence: FR)
  Receive Date: 20220927
  Receipt Date: 20220927
  Transmission Date: 20221027
  Serious: Yes (Hospitalization)
  Sender: FDA-Public Use
  Company Number: FR-LFBP-2022000272

PATIENT
  Age: 85 Year
  Sex: Female

DRUGS (3)
  1. TRANEXAMIC ACID [Suspect]
     Active Substance: TRANEXAMIC ACID
     Indication: Acquired Von Willebrand^s disease
     Dosage: UNK
     Route: 065
  2. VON WILLEBRAND FACTOR HUMAN [Suspect]
     Active Substance: VON WILLEBRAND FACTOR HUMAN
     Indication: Acquired Von Willebrand^s disease
     Dosage: 4000 INTERNATIONAL UNIT, QD
     Route: 065
     Dates: start: 2021
  3. ENOXAPARIN SODIUM [Concomitant]
     Active Substance: ENOXAPARIN SODIUM
     Indication: Thrombosis prophylaxis
     Dosage: 4000 INTERNATIONAL UNIT, QD
     Route: 065

REACTIONS (3)
  - Post procedural pulmonary embolism [Unknown]
  - Deep vein thrombosis [Unknown]
  - Product use in unapproved indication [Unknown]
